FAERS Safety Report 11111515 (Version 1)
Quarter: 2015Q2

REPORT INFORMATION
  Report Type: Report from Study
  Country: US (occurrence: US)
  Receive Date: 20150513
  Receipt Date: 20150513
  Transmission Date: 20150821
  Serious: Yes (Life-Threatening, Hospitalization)
  Sender: FDA-Public Use
  Company Number: US-AMGEN-USACT2015008596

PATIENT
  Age: 6 Year
  Sex: Male
  Weight: 17 kg

DRUGS (15)
  1. MYCOPHENOLATE [Concomitant]
     Active Substance: MYCOPHENOLIC ACID
     Dosage: 80 MG, QD
     Route: 048
     Dates: start: 20141227, end: 20150119
  2. SOLU-MEDROL [Concomitant]
     Active Substance: METHYLPREDNISOLONE SODIUM SUCCINATE
     Route: 042
  3. ALDACTONE [Concomitant]
     Active Substance: SPIRONOLACTONE
     Dosage: 17.6 MG, QD
     Route: 048
     Dates: start: 20150112
  4. RANITIDINE [Concomitant]
     Active Substance: RANITIDINE\RANITIDINE HYDROCHLORIDE
     Dosage: 39 MG, BID
     Route: 048
     Dates: start: 20141230
  5. MILRINONE [Concomitant]
     Active Substance: MILRINONE
     Dosage: 0.75 MUG/KG, UNK
  6. AMIODARONE [Concomitant]
     Active Substance: AMIODARONE
     Dosage: UNK
  7. FUROSEMIDE. [Concomitant]
     Active Substance: FUROSEMIDE
     Dosage: 20 MG, BID
     Route: 048
     Dates: start: 20150107
  8. LISINOPRIL. [Concomitant]
     Active Substance: LISINOPRIL
     Dosage: 3 MG, QD
     Route: 048
     Dates: start: 20150115
  9. IMMUNOGLOBULIN                     /00025201/ [Concomitant]
     Active Substance: HUMAN IMMUNOGLOBULIN G
     Route: 042
  10. TACROLIMUS. [Concomitant]
     Active Substance: TACROLIMUS
     Dosage: 0.5 MG, BID
     Route: 048
     Dates: start: 20150105
  11. PREDNISOLONE. [Concomitant]
     Active Substance: PREDNISOLONE
     Dosage: 2.4 MG, QD
     Route: 048
     Dates: start: 20150108, end: 20150119
  12. ASPIRIN                            /00002701/ [Concomitant]
     Active Substance: ASPIRIN
     Dosage: 40.5 MG, QD
     Route: 048
     Dates: start: 20141227
  13. RITUXIMAB [Concomitant]
     Active Substance: RITUXIMAB
  14. IVABRADINE [Suspect]
     Active Substance: IVABRADINE
     Indication: PRODUCT USED FOR UNKNOWN INDICATION
     Dosage: 2.5 MG, Q12H
     Route: 048
     Dates: start: 20150105, end: 20150119
  15. CARVEDILOL. [Concomitant]
     Active Substance: CARVEDILOL

REACTIONS (1)
  - Cardiac arrest [Recovered/Resolved]

NARRATIVE: CASE EVENT DATE: 20150119
